FAERS Safety Report 6985945-0 (Version None)
Quarter: 2010Q3

REPORT INFORMATION
  Report Type: 
  Country: None (occurrence: None)
  Receive Date: 20100915
  Receipt Date: 20100902
  Transmission Date: 20110219
  Serious: Yes (Other)
  Sender: FDA-Public Use
  Company Number: US-ELI_LILLY_AND_COMPANY-US201009001155

PATIENT
  Sex: Female

DRUGS (1)
  1. HUMALOG [Suspect]
     Indication: DIABETES MELLITUS

REACTIONS (7)
  - DEPRESSED MOOD [None]
  - EYE DISORDER [None]
  - FEELING ABNORMAL [None]
  - MALAISE [None]
  - RENAL FAILURE [None]
  - VASCULAR GRAFT [None]
  - VISUAL IMPAIRMENT [None]
